FAERS Safety Report 11917258 (Version 2)
Quarter: 2016Q1

REPORT INFORMATION
  Report Type: Spontaneous
  Country: CH (occurrence: CH)
  Receive Date: 20160114
  Receipt Date: 20160120
  Transmission Date: 20160526
  Serious: Yes (Hospitalization)
  Sender: FDA-Public Use
  Company Number: CH-TEVA-624001ISR

PATIENT
  Age: 76 Year
  Sex: Female
  Weight: 50.3 kg

DRUGS (5)
  1. CO-AMOXI [Suspect]
     Active Substance: AMOXICILLIN\CLAVULANATE POTASSIUM
     Indication: ERYSIPELAS
     Dosage: 6.6 GRAM DAILY;
     Route: 041
     Dates: start: 20151223, end: 20151228
  2. PANTOZOL [Concomitant]
     Active Substance: PANTOPRAZOLE SODIUM
     Dosage: 20 MILLIGRAM DAILY;
     Route: 048
  3. FEMARA [Concomitant]
     Active Substance: LETROZOLE
     Dosage: 2.5 MILLIGRAM DAILY;
     Route: 048
  4. DOXIUM [Concomitant]
     Dosage: 4 DOSAGE FORMS DAILY; STRENGTH 500 MG, 4 DF DAILY
     Route: 048
  5. CO-AMOXI-MEPHA LACTAB 625 [Suspect]
     Active Substance: AMOXICILLIN\CLAVULANIC ACID
     Indication: ERYSIPELAS
     Dosage: 1875 MILLIGRAM DAILY; 1 DF = 500 MG AMOXICILLIN + 125 MG CLAVULANIC ACID; SWITCH FROM
     Route: 048
     Dates: start: 20151216, end: 20151222

REACTIONS (3)
  - Swelling [None]
  - Neutropenia [Not Recovered/Not Resolved]
  - Hyperthermia [None]

NARRATIVE: CASE EVENT DATE: 20151227
